FAERS Safety Report 19053845 (Version 3)
Quarter: 2022Q4

REPORT INFORMATION
  Report Type: Spontaneous
  Country: ES (occurrence: ES)
  Receive Date: 20210324
  Receipt Date: 20221203
  Transmission Date: 20230113
  Serious: Yes (Other)
  Sender: FDA-Public Use
  Company Number: NVSC2021ES062806

PATIENT
  Age: 66 Year
  Sex: Female

DRUGS (24)
  1. SIMVASTATIN [Interacting]
     Active Substance: SIMVASTATIN
     Indication: Product used for unknown indication
     Dosage: 20 MG, QD (1X/DAY)
     Route: 048
     Dates: start: 2012, end: 20130627
  2. ATORVASTATIN CALCIUM [Interacting]
     Active Substance: ATORVASTATIN CALCIUM
     Indication: Product used for unknown indication
     Dosage: 40 MG, QD (1X/DAY)
     Route: 048
     Dates: start: 2012
  3. CUBICIN [Interacting]
     Active Substance: DAPTOMYCIN
     Indication: Device related infection
     Dosage: 1200 MG, QD (600 MG, 2X/DAY)
     Route: 065
     Dates: start: 20130524, end: 20130701
  4. CUBICIN [Interacting]
     Active Substance: DAPTOMYCIN
     Dosage: 4800 MG, QD (2400 MG, 2X/DAY  )
     Route: 065
     Dates: start: 20130524, end: 20130701
  5. CUBICIN [Interacting]
     Active Substance: DAPTOMYCIN
     Dosage: 800 MG, QD
     Route: 065
     Dates: start: 20130912, end: 20130924
  6. ZOCOR [Interacting]
     Active Substance: SIMVASTATIN
     Indication: Product used for unknown indication
     Dosage: 20 MG, QD (1X/DAY)
     Route: 048
     Dates: start: 2012, end: 20130627
  7. DICLOFENAC [Concomitant]
     Active Substance: DICLOFENAC
     Indication: Product used for unknown indication
     Dosage: UNK
     Route: 065
  8. FOLIC ACID [Concomitant]
     Active Substance: FOLIC ACID
     Indication: Product used for unknown indication
     Dosage: UNK
     Route: 065
  9. POLARAMINE [Concomitant]
     Active Substance: DEXCHLORPHENIRAMINE MALEATE
     Indication: Product used for unknown indication
     Dosage: UNK
     Route: 065
  10. LORAZEPAM [Concomitant]
     Active Substance: LORAZEPAM
     Indication: Product used for unknown indication
     Dosage: UNK
     Route: 065
  11. TRAMADOL HYDROCHLORIDE [Concomitant]
     Active Substance: TRAMADOL HYDROCHLORIDE
     Indication: Product used for unknown indication
     Dosage: UNK
     Route: 048
  12. DULOXETINE HYDROCHLORIDE [Concomitant]
     Active Substance: DULOXETINE HYDROCHLORIDE
     Indication: Product used for unknown indication
     Dosage: UNK
     Route: 065
  13. METAMIZOLE MAGNESIUM [Concomitant]
     Active Substance: METAMIZOLE MAGNESIUM
     Indication: Product used for unknown indication
     Dosage: UNK
     Route: 065
  14. FERROUS SULFATE [Concomitant]
     Active Substance: FERROUS SULFATE
     Indication: Product used for unknown indication
     Dosage: UNK
     Route: 065
  15. ACETAMINOPHEN [Concomitant]
     Active Substance: ACETAMINOPHEN
     Indication: Product used for unknown indication
     Dosage: UNK
     Route: 065
  16. AMERIDE [Concomitant]
     Indication: Product used for unknown indication
     Dosage: UNK
     Route: 065
  17. FLURAZEPAM HYDROCHLORIDE [Concomitant]
     Active Substance: FLURAZEPAM HYDROCHLORIDE
     Indication: Product used for unknown indication
     Dosage: 30 DOSAGE FORM
     Route: 048
  18. NOLOTIL [Concomitant]
     Indication: Product used for unknown indication
     Dosage: 10 DOSAGE FORM
     Route: 048
  19. FERROUS SULFATE [Concomitant]
     Active Substance: FERROUS SULFATE
     Indication: Product used for unknown indication
     Dosage: UNK
     Route: 065
  20. ENALAPRIL [Concomitant]
     Active Substance: ENALAPRIL
     Indication: Product used for unknown indication
     Dosage: UNK
     Route: 048
  21. OMEPRAZOLE [Concomitant]
     Active Substance: OMEPRAZOLE
     Indication: Product used for unknown indication
     Dosage: 20 MG, QD (1X/DAY)
     Route: 048
  22. ACETAMINOPHEN [Concomitant]
     Active Substance: ACETAMINOPHEN
     Indication: Product used for unknown indication
     Dosage: UNK
     Route: 048
  23. DEXCHLORPHENIRAMINE MALEATE [Concomitant]
     Active Substance: DEXCHLORPHENIRAMINE MALEATE
     Indication: Product used for unknown indication
     Dosage: UNK
     Route: 065
  24. MODURETIC 5-50 [Concomitant]
     Active Substance: AMILORIDE HYDROCHLORIDE\HYDROCHLOROTHIAZIDE
     Indication: Product used for unknown indication
     Dosage: UNK
     Route: 065

REACTIONS (2)
  - Drug interaction [Unknown]
  - Myopathy [Recovered/Resolved]

NARRATIVE: CASE EVENT DATE: 20130627
